FAERS Safety Report 5138652-3 (Version None)
Quarter: 2006Q4

REPORT INFORMATION
  Report Type: 
  Country: None (occurrence: None)
  Receive Date: 20061023
  Receipt Date: 20061003
  Transmission Date: 20070319
  Serious: Yes (Other)
  Sender: FDA-Public Use
  Company Number: US200610002772

PATIENT
  Age: 48 Year
  Sex: Male

DRUGS (3)
  1. XIGRIS [Suspect]
  2. LEVOFLOXACIN [Concomitant]
  3. HEPARIN [Concomitant]

REACTIONS (1)
  - PULMONARY EMBOLISM [None]
